FAERS Safety Report 6004188-0 (Version None)
Quarter: 2008Q4

REPORT INFORMATION
  Report Type: 
  Country: None (occurrence: None)
  Receive Date: 20081215
  Receipt Date: 20081215
  Transmission Date: 20090506
  Serious: Yes (Other)
  Sender: FDA-Public Use
  Company Number: None

PATIENT
  Age: 65 Year
  Sex: Female
  Weight: 79.8331 kg

DRUGS (1)
  1. PRIMIDONE [Suspect]
     Indication: FAMILIAL TREMOR
     Dosage: 25MG ONCE A DAY PO
     Route: 048
     Dates: start: 20081119, end: 20081119

REACTIONS (3)
  - DIZZINESS [None]
  - DYSARTHRIA [None]
  - VOMITING [None]
